FAERS Safety Report 20208234 (Version 1)
Quarter: 2021Q4

REPORT INFORMATION
  Report Type: Spontaneous
  Country: None (occurrence: US)
  Receive Date: 20211220
  Receipt Date: 20211220
  Transmission Date: 20220303
  Serious: No
  Sender: FDA-Public Use
  Company Number: US-Fagron Sterile Services-2123200

PATIENT

DRUGS (1)
  1. LIDOCAINE\PHENYLEPHRINE [Suspect]
     Active Substance: LIDOCAINE\PHENYLEPHRINE

REACTIONS (1)
  - Drug ineffective [None]
